FAERS Safety Report 4744366-1 (Version None)
Quarter: 2005Q3

REPORT INFORMATION
  Report Type: 
  Country: None (occurrence: None)
  Receive Date: 20050811
  Receipt Date: 20050811
  Transmission Date: 20060218
  Serious: Yes (Other)
  Sender: FDA-Public Use
  Company Number: None

PATIENT
  Age: 55 Year
  Sex: Male
  Weight: 96.3894 kg

DRUGS (2)
  1. SIMVASTATIN [Suspect]
     Indication: BLOOD CHOLESTEROL INCREASED
     Dosage: 20MG    HS    ORAL
     Route: 048
     Dates: start: 20050518, end: 20050612
  2. ASPIRIN [Concomitant]

REACTIONS (6)
  - ANAEMIA [None]
  - CARDIAC DISORDER [None]
  - HYPERHIDROSIS [None]
  - NAUSEA [None]
  - THROAT TIGHTNESS [None]
  - THROMBOCYTOPENIA [None]
